FAERS Safety Report 21092684 (Version 2)
Quarter: 2022Q3

REPORT INFORMATION
  Report Type: Report from Study
  Country: KR (occurrence: KR)
  Receive Date: 20220718
  Receipt Date: 20220727
  Transmission Date: 20221026
  Serious: Yes (Death, Hospitalization, Other)
  Sender: FDA-Public Use
  Company Number: KR-BRISTOL-MYERS SQUIBB COMPANY-2022-074280

PATIENT
  Age: 63 Year
  Sex: Female

DRUGS (2)
  1. YERVOY [Suspect]
     Active Substance: IPILIMUMAB
     Indication: Soft tissue sarcoma
     Dosage: 100/20 MG/ML, VI, ONCE
     Route: 042
  2. OPDIVO [Suspect]
     Active Substance: NIVOLUMAB
     Indication: Soft tissue sarcoma
     Dosage: 200/20, 40/4 MG/ML, IV, ONCE
     Route: 042

REACTIONS (3)
  - Adverse event [Unknown]
  - Death [Fatal]
  - Intentional product use issue [Unknown]

NARRATIVE: CASE EVENT DATE: 20220525
